FAERS Safety Report 6179907-3 (Version None)
Quarter: 2009Q2

REPORT INFORMATION
  Report Type: 
  Country: None (occurrence: None)
  Receive Date: 20090505
  Receipt Date: 20090427
  Transmission Date: 20091009
  Serious: Yes (Hospitalization)
  Sender: FDA-Public Use
  Company Number: DE-WYE-G03575409

PATIENT
  Sex: Male

DRUGS (4)
  1. TREVILOR RETARD [Suspect]
     Dosage: 14 CAPSULES (OVERDOSE AMOUNT 1050 MG)
     Route: 048
     Dates: start: 20090423, end: 20090423
  2. SEROQUEL [Suspect]
     Dosage: 8 - 10 TABLETS (OVERDOSE AMOUNT 1600 MG - 2000 MG)
     Route: 048
     Dates: start: 20090423, end: 20090423
  3. TRIMIPRAMINE MALEATE [Suspect]
     Dosage: UNKNOWN)
     Route: 048
     Dates: start: 20090423, end: 20090423
  4. ETHANOL [Suspect]
     Dosage: UNKNOWN
     Route: 048
     Dates: start: 20090423, end: 20090423

REACTIONS (4)
  - DRUG WITHDRAWAL SYNDROME [None]
  - INTENTIONAL OVERDOSE [None]
  - SKIN LACERATION [None]
  - SUICIDE ATTEMPT [None]
